FAERS Safety Report 12839162 (Version 1)
Quarter: 2016Q4

REPORT INFORMATION
  Report Type: Spontaneous
  Country: US (occurrence: US)
  Receive Date: 20161012
  Receipt Date: 20161012
  Transmission Date: 20170207
  Serious: No
  Sender: FDA-Public Use
  Company Number: US-TEVA-673800USA

PATIENT
  Age: 41 Year
  Sex: Male

DRUGS (1)
  1. ZECUITY [Suspect]
     Active Substance: SUMATRIPTAN SUCCINATE
     Indication: MIGRAINE
     Route: 062
     Dates: start: 20160605, end: 20160605

REACTIONS (11)
  - Application site pain [Unknown]
  - Application site paraesthesia [Unknown]
  - Product leakage [Unknown]
  - Application site inflammation [Unknown]
  - Incorrect drug administration duration [Unknown]
  - Application site vesicles [Recovered/Resolved]
  - Application site scab [Not Recovered/Not Resolved]
  - Drug ineffective [Unknown]
  - Application site erythema [Recovered/Resolved]
  - Application site pruritus [Recovered/Resolved]
  - Skin exfoliation [Not Recovered/Not Resolved]

NARRATIVE: CASE EVENT DATE: 201606
